FAERS Safety Report 6594700-5 (Version None)
Quarter: 2010Q1

REPORT INFORMATION
  Report Type: 
  Country: None (occurrence: None)
  Receive Date: 20100222
  Receipt Date: 20100218
  Transmission Date: 20100710
  Serious: Yes (Other)
  Sender: FDA-Public Use
  Company Number: CHPA2010US03462

PATIENT
  Sex: Female

DRUGS (3)
  1. MAALOX ADV MAXIMUM STRENGTH ANTACID/ANTIGAS (NCH) [Suspect]
     Dosage: UNK, UNK
     Route: 048
  2. MAALOX MS TOTAL STOMACH RELIEF (NCH) [Suspect]
     Dosage: UNK, UNK
     Route: 048
  3. MAALOX UNKNOWN (NCH) [Suspect]
     Dosage: UNK, UNK
     Route: 048
     Dates: start: 19600101

REACTIONS (3)
  - DRUG LABEL CONFUSION [None]
  - DUODENAL ULCER [None]
  - DUODENAL ULCER HAEMORRHAGE [None]
